FAERS Safety Report 16674482 (Version 3)
Quarter: 2019Q4

REPORT INFORMATION
  Report Type: Report from Study
  Country: US (occurrence: US)
  Receive Date: 20190806
  Receipt Date: 20191002
  Transmission Date: 20200122
  Serious: Yes (Death, Hospitalization, Other)
  Sender: FDA-Public Use
  Company Number: US-JNJFOC-20190705890

PATIENT
  Sex: Male

DRUGS (1)
  1. IMBRUVICA [Suspect]
     Active Substance: IBRUTINIB
     Indication: CHRONIC LYMPHOCYTIC LEUKAEMIA
     Dosage: 420 MG, QD
     Route: 048
     Dates: start: 20190624, end: 201907

REACTIONS (4)
  - Pneumonia [Unknown]
  - Renal impairment [Unknown]
  - Internal haemorrhage [Unknown]
  - Disease progression [Fatal]

NARRATIVE: CASE EVENT DATE: 2019
